FAERS Safety Report 9736331 (Version 1)
Quarter: 2013Q4

REPORT INFORMATION
  Report Type: Report from Study
  Country: US (occurrence: US)
  Receive Date: 20131206
  Receipt Date: 20131206
  Transmission Date: 20140711
  Serious: Yes (Hospitalization)
  Sender: FDA-Public Use
  Company Number: US-ROCHE-1312890

PATIENT
  Age: 66 Year
  Sex: Male

DRUGS (2)
  1. LUCENTIS [Suspect]
     Indication: AGE-RELATED MACULAR DEGENERATION
     Route: 065
  2. OXYGEN [Concomitant]

REACTIONS (4)
  - Loss of consciousness [Unknown]
  - Hypotension [Unknown]
  - Hypokinesia [Unknown]
  - Visual acuity reduced [Unknown]
